FAERS Safety Report 10982280 (Version 1)
Quarter: 2015Q2

REPORT INFORMATION
  Report Type: Spontaneous
  Country: GB (occurrence: GB)
  Receive Date: 20150403
  Receipt Date: 20150403
  Transmission Date: 20150821
  Serious: Yes (Other)
  Sender: FDA-Public Use
  Company Number: GB-ROCHE-1559982

PATIENT
  Sex: Female
  Weight: 64 kg

DRUGS (4)
  1. CAPECITABINE. [Suspect]
     Active Substance: CAPECITABINE
     Indication: BREAST CANCER METASTATIC
     Dosage: 2000/1500 MG, BID (2/DAY), DAY 1 TO DAY 14, CYCLE 1
     Route: 065
  2. VINORELBINE TARTRATE. [Suspect]
     Active Substance: VINORELBINE TARTRATE
     Indication: PRODUCT USED FOR UNKNOWN INDICATION
     Dosage: 60MG, DAY 1, CYCLE 2, CYCLICAL (1/21)
     Route: 042
     Dates: start: 20041027
  3. VINORELBINE TARTRATE. [Suspect]
     Active Substance: VINORELBINE TARTRATE
     Route: 042
     Dates: start: 20040928
  4. CAPECITABINE. [Suspect]
     Active Substance: CAPECITABINE
     Dosage: 1500/1000 MG, CYCLE 2
     Route: 065
     Dates: end: 20050216

REACTIONS (2)
  - Gastrointestinal toxicity [Unknown]
  - Haematotoxicity [Unknown]
